FAERS Safety Report 12924637 (Version 2)
Quarter: 2016Q4

REPORT INFORMATION
  Report Type: Spontaneous
  Country: IT (occurrence: IT)
  Receive Date: 20161109
  Receipt Date: 20161111
  Transmission Date: 20170207
  Serious: Yes (Other)
  Sender: FDA-Public Use
  Company Number: IT-OTSUKA-2016_025980

PATIENT
  Age: 5 Year
  Weight: 24 kg

DRUGS (18)
  1. ALKERAN [Concomitant]
     Active Substance: MELPHALAN
     Indication: AUTOLOGOUS BONE MARROW TRANSPLANTATION THERAPY
     Dosage: 120 MG, UNK
     Route: 065
     Dates: start: 20160214, end: 20160214
  2. EPARINA [Concomitant]
     Indication: PRODUCT USED FOR UNKNOWN INDICATION
     Dosage: 2400 IU, UNK
     Route: 065
     Dates: start: 20160209, end: 20160308
  3. MYCOSTATIN [Concomitant]
     Active Substance: NYSTATIN
     Indication: PRODUCT USED FOR UNKNOWN INDICATION
     Dosage: 15 ML, UNK
     Route: 065
     Dates: start: 20160209, end: 201607
  4. IG VENA [Concomitant]
     Active Substance: HUMAN IMMUNOGLOBULIN G
     Indication: PRODUCT USED FOR UNKNOWN INDICATION
     Dosage: 10 G, UNK
     Route: 065
     Dates: start: 20160209, end: 20160227
  5. TEGRETOL [Concomitant]
     Active Substance: CARBAMAZEPINE
     Indication: PRODUCT USED FOR UNKNOWN INDICATION
     Dosage: 240 MG, UNK
     Route: 065
     Dates: start: 20160209, end: 20160214
  6. LASIX [Concomitant]
     Active Substance: FUROSEMIDE
     Indication: PRODUCT USED FOR UNKNOWN INDICATION
     Dosage: 48 MG, UNK
     Route: 065
     Dates: start: 20160209, end: 20160319
  7. BUSILVEX [Suspect]
     Active Substance: BUSULFAN
     Indication: AUTOLOGOUS BONE MARROW TRANSPLANTATION THERAPY
     Dosage: 91.2 ML, UNK
     Route: 042
     Dates: start: 20160210, end: 20160213
  8. URSODEOXYCHOLIC ACID [Concomitant]
     Active Substance: URSODIOL
     Indication: PRODUCT USED FOR UNKNOWN INDICATION
     Dosage: 300 MG, UNK
     Route: 065
     Dates: start: 20160209, end: 201607
  9. EMEND [Concomitant]
     Active Substance: APREPITANT
     Indication: PRODUCT USED FOR UNKNOWN INDICATION
     Dosage: 1 (UNSPECIFIED UNIT)
     Route: 065
     Dates: start: 20160210, end: 20160212
  10. FLUCONAZOL [Concomitant]
     Active Substance: FLUCONAZOLE
     Indication: PRODUCT USED FOR UNKNOWN INDICATION
     Dosage: 150 MG, UNK
     Route: 065
     Dates: start: 20160209, end: 20160224
  11. CIPROXIN [Concomitant]
     Active Substance: CIPROFLOXACIN
     Indication: PRODUCT USED FOR UNKNOWN INDICATION
     Dosage: 500 MG, UNK
     Route: 065
     Dates: start: 20160209, end: 20160224
  12. RANITIDINE. [Concomitant]
     Active Substance: RANITIDINE
     Indication: PRODUCT USED FOR UNKNOWN INDICATION
     Dosage: 50 MG, UNK
     Route: 065
     Dates: start: 20160209, end: 20160328
  13. ACICLOVIR [Concomitant]
     Active Substance: ACYCLOVIR
     Dosage: 600 MG, UNK
     Route: 065
     Dates: start: 20160215, end: 20160315
  14. ALOXYN [Concomitant]
     Indication: PRODUCT USED FOR UNKNOWN INDICATION
     Dosage: 120 MG, UNK
     Route: 065
     Dates: start: 20160210, end: 20160213
  15. ACICLOVIR [Concomitant]
     Active Substance: ACYCLOVIR
     Indication: PRODUCT USED FOR UNKNOWN INDICATION
     Dosage: 900 MG, UNK
     Route: 065
     Dates: start: 20160209, end: 20160214
  16. SODIO CLORURO [Concomitant]
     Active Substance: SODIUM CHLORIDE
     Indication: PRODUCT USED FOR UNKNOWN INDICATION
     Dosage: UNK
     Route: 065
     Dates: start: 20160217, end: 20160322
  17. BACTRIM [Concomitant]
     Active Substance: SULFAMETHOXAZOLE\TRIMETHOPRIM
     Indication: PRODUCT USED FOR UNKNOWN INDICATION
     Dosage: 2.5 ML, UNK
     Route: 065
     Dates: start: 20160209, end: 20160212
  18. POTASSIO CLORURO [Concomitant]
     Active Substance: POTASSIUM CHLORIDE
     Indication: PRODUCT USED FOR UNKNOWN INDICATION
     Dosage: UNK
     Route: 065
     Dates: start: 20160209, end: 20160322

REACTIONS (1)
  - Hypertransaminasaemia [Unknown]

NARRATIVE: CASE EVENT DATE: 20160315
